FAERS Safety Report 9665444 (Version 1)
Quarter: 2013Q4

REPORT INFORMATION
  Report Type: Spontaneous
  Country: US (occurrence: None)
  Receive Date: 20131031
  Receipt Date: 20131031
  Transmission Date: 20140711
  Serious: Yes (Hospitalization)
  Sender: FDA-Public Use
  Company Number: None

PATIENT
  Age: 64 Year
  Sex: Female
  Weight: 170 kg

DRUGS (7)
  1. CYCLOSPORINE [Suspect]
     Indication: IMMUNOSUPPRESSION
     Route: 042
     Dates: start: 20110815, end: 20110815
  2. PIPERACILLIN/TAZOBACTAM [Concomitant]
  3. METOPROLOL [Concomitant]
  4. LEVOTHYROXINE [Concomitant]
  5. FLUCONAZOLE [Concomitant]
  6. RANITIDINE [Concomitant]
  7. MYCOPHENOLATE [Concomitant]

REACTIONS (2)
  - Blood creatinine increased [None]
  - Incorrect drug administration duration [None]
